FAERS Safety Report 21574509 (Version 1)
Quarter: 2022Q4

REPORT INFORMATION
  Report Type: Spontaneous
  Country: SA (occurrence: SA)
  Receive Date: 20221109
  Receipt Date: 20221109
  Transmission Date: 20230112
  Serious: Yes (Death)
  Sender: FDA-Public Use
  Company Number: SA-NOVITIUMPHARMA-2022SANVP00272

PATIENT
  Age: 22 Year
  Sex: Female

DRUGS (1)
  1. LIDOCAINE HYDROCHLORIDE [Suspect]
     Active Substance: LIDOCAINE HYDROCHLORIDE
     Indication: Pain management

REACTIONS (5)
  - Toxicity to various agents [Fatal]
  - Intentional product misuse [Fatal]
  - Cardio-respiratory arrest [Fatal]
  - Seizure [Fatal]
  - Exposure during pregnancy [Fatal]
